FAERS Safety Report 6445223-5 (Version None)
Quarter: 2009Q4

REPORT INFORMATION
  Report Type: 
  Country: None (occurrence: None)
  Receive Date: 20091118
  Receipt Date: 20091106
  Transmission Date: 20100525
  Serious: Yes (Other)
  Sender: FDA-Public Use
  Company Number: DE-PFIZER INC-2009294561

PATIENT
  Sex: Female

DRUGS (4)
  1. ZELDOX [Suspect]
     Indication: BIPOLAR DISORDER
     Dosage: UNK
     Route: 048
  2. LITHIUM [Concomitant]
     Indication: BIPOLAR DISORDER
  3. SEROQUEL [Concomitant]
     Indication: BIPOLAR DISORDER
     Dosage: UNK
  4. VALPROATE SODIUM [Concomitant]
     Indication: BIPOLAR DISORDER

REACTIONS (1)
  - SLEEP ATTACKS [None]
